FAERS Safety Report 7479396-2 (Version None)
Quarter: 2011Q2

REPORT INFORMATION
  Report Type: 
  Country: None (occurrence: None)
  Receive Date: 20110513
  Receipt Date: 20110510
  Transmission Date: 20111010
  Serious: Yes (Other)
  Sender: FDA-Public Use
  Company Number: CH-PFIZER INC-2011099661

PATIENT
  Sex: Male

DRUGS (6)
  1. LOSARTAN [Concomitant]
     Dosage: UNK
  2. ATORVASTATIN CALCIUM [Concomitant]
     Dosage: UNK
  3. METFORMIN [Concomitant]
     Dosage: UNK
  4. ASPIRIN [Concomitant]
     Dosage: UNK
  5. LYRICA [Suspect]
     Dosage: UNK
  6. TORSEMIDE [Concomitant]
     Dosage: UNK

REACTIONS (3)
  - AGITATION [None]
  - LUPUS-LIKE SYNDROME [None]
  - C-REACTIVE PROTEIN INCREASED [None]
